FAERS Safety Report 9076150 (Version 1)
Quarter: 2013Q1

REPORT INFORMATION
  Report Type: Report from Study
  Country: US (occurrence: US)
  Receive Date: 20130129
  Receipt Date: 20130129
  Transmission Date: 20140127
  Serious: No
  Sender: FDA-Public Use
  Company Number: US-ABBOTT-12P-163-0929990-00

PATIENT
  Age: 57 Year
  Sex: Female

DRUGS (11)
  1. HUMIRA 40 MG/ 0.8 ML PRE-FILLED SYRINGE [Suspect]
     Indication: RHEUMATOID ARTHRITIS
     Dates: start: 20120425
  2. LEVOTHROID [Concomitant]
     Indication: HYPOTHYROIDISM
     Dosage: 0.125MG DAILY
  3. HYDROCHLOROTHIAZIDE [Concomitant]
     Indication: HYPERTENSION
     Dosage: 1 TABLET DAILY
  4. VENLAFAXINE [Concomitant]
     Indication: PRODUCT USED FOR UNKNOWN INDICATION
     Dosage: 75MG, 2 TABS DAILY
  5. TOPIRAMATE [Concomitant]
     Indication: MIGRAINE
     Dosage: AT BEDTIME
  6. NORTRIPTYLINE [Concomitant]
     Indication: MIGRAINE
  7. VICODIN [Concomitant]
     Indication: MIGRAINE
     Dosage: 5/500 HALF TAB AS NEEDED
  8. VICODIN [Concomitant]
     Indication: PAIN
  9. MELOXICAM [Concomitant]
     Indication: INFLAMMATION
     Dosage: 7.5MG, 2 TABS DAILY
  10. EFFEXOR [Concomitant]
     Indication: DEPRESSION
     Dosage: 2 PER DAY IN THE MORNING
  11. BACLOFEN [Concomitant]
     Indication: MIGRAINE
     Dosage: 10MG 1/2 TAB AS NEEDED

REACTIONS (3)
  - Injection site pain [Recovered/Resolved]
  - Arthralgia [Not Recovered/Not Resolved]
  - Arthralgia [Not Recovered/Not Resolved]
